FAERS Safety Report 6415763-3 (Version None)
Quarter: 2009Q4

REPORT INFORMATION
  Report Type: 
  Country: None (occurrence: None)
  Receive Date: 20091027
  Receipt Date: 20091014
  Transmission Date: 20100525
  Serious: Yes (Other)
  Sender: FDA-Public Use
  Company Number: JP-PFIZER INC-2009285652

PATIENT
  Age: 61 Year

DRUGS (4)
  1. EPIRUBICIN HCL [Suspect]
     Indication: BREAST CANCER
     Dosage: 100 MG/M2, EVERY 3 WEEKS
  2. CYCLOPHOSPHAMIDE [Suspect]
     Indication: BREAST CANCER
     Dosage: 500 MG/M2, EVERY 3 WEEKS
  3. FLUOROURACIL [Suspect]
     Indication: BREAST CANCER
     Dosage: 500 MG/M2, EVERY 3 WEEKS
  4. DOCETAXEL [Suspect]
     Indication: BREAST CANCER
     Dosage: 30 MG/M2, WEEKLY

REACTIONS (1)
  - SQUAMOUS CELL CARCINOMA [None]
